FAERS Safety Report 25383550 (Version 1)
Quarter: 2025Q2

REPORT INFORMATION
  Report Type: Spontaneous
  Country: US (occurrence: US)
  Receive Date: 20250602
  Receipt Date: 20250602
  Transmission Date: 20250717
  Serious: Yes (Hospitalization)
  Sender: LAURUS LABS LIMITED
  Company Number: US-LAURUS LABS LIMITED-2025LAU000040

PATIENT
  Age: 13 Year
  Sex: Female

DRUGS (2)
  1. METFORMIN [Suspect]
     Active Substance: METFORMIN HYDROCHLORIDE
     Indication: Product used for unknown indication
     Route: 048
  2. SERTRALINE [Concomitant]
     Active Substance: SERTRALINE HYDROCHLORIDE
     Indication: Product used for unknown indication
     Route: 065

REACTIONS (6)
  - Ventricular dysfunction [Recovering/Resolving]
  - Suspected suicide attempt [Unknown]
  - Pancreatitis [Recovering/Resolving]
  - Intentional overdose [Unknown]
  - Metabolic acidosis [Recovering/Resolving]
  - Hyperlactacidaemia [Recovering/Resolving]
